FAERS Safety Report 9454852 (Version 1)
Quarter: 2013Q3

REPORT INFORMATION
  Report Type: Spontaneous
  Country: US (occurrence: US)
  Receive Date: 20130813
  Receipt Date: 20130813
  Transmission Date: 20140515
  Serious: No
  Sender: FDA-Public Use
  Company Number: US-009507513-1308USA004595

PATIENT
  Age: 70 Year
  Sex: Male

DRUGS (2)
  1. ASMANEX TWISTHALER [Suspect]
     Indication: ASTHMA
     Dosage: UNK
     Route: 055
     Dates: start: 201307
  2. ALBUTEROL [Concomitant]
     Dosage: UNK, INHALER

REACTIONS (1)
  - Haemoptysis [Unknown]
